FAERS Safety Report 5102560-4 (Version None)
Quarter: 2006Q3

REPORT INFORMATION
  Report Type: 
  Country: None (occurrence: None)
  Receive Date: 20060912
  Receipt Date: 20051025
  Transmission Date: 20061208
  Serious: Yes (Disabling)
  Sender: FDA-Public Use
  Company Number: JP-GLAXOSMITHKLINE-B0398573A

PATIENT
  Age: 36 Year
  Sex: Male

DRUGS (13)
  1. EPIVIR [Suspect]
     Indication: HIV INFECTION
     Dosage: 300MG PER DAY
     Route: 048
     Dates: start: 20010806, end: 20041103
  2. ZIAGEN [Suspect]
     Indication: HIV INFECTION
     Route: 048
     Dates: start: 20010122
  3. FOSAMPRENAVIR [Suspect]
     Indication: HIV INFECTION
     Dosage: 700MG TWICE PER DAY
     Route: 048
     Dates: start: 20050216
  4. VIRACEPT [Suspect]
     Indication: HIV INFECTION
     Dosage: 2500MG PER DAY
     Route: 048
     Dates: start: 20040927, end: 20041103
  5. KALETRA [Suspect]
     Indication: HIV INFECTION
     Dosage: 6CAP PER DAY
     Route: 048
     Dates: start: 20011022
  6. ATAZANAVIR [Suspect]
     Indication: HIV INFECTION
     Route: 048
     Dates: start: 20040116, end: 20040924
  7. TENOFOVIR DISOPROXIL FUMARATE [Suspect]
     Indication: HIV INFECTION
     Dosage: 300MG PER DAY
     Route: 048
     Dates: start: 20020401, end: 20040113
  8. RIBAVIRIN [Suspect]
     Route: 048
  9. INTERFERON ALFA-2B [Suspect]
     Route: 030
     Dates: start: 20041227
  10. ABACAVIR [Concomitant]
     Indication: ACQUIRED IMMUNODEFICIENCY SYNDROME
     Route: 048
     Dates: start: 20050216, end: 20050317
  11. DIFLUCAN [Concomitant]
     Indication: ORAL CANDIDIASIS
     Route: 065
     Dates: start: 20030401
  12. LOXONIN [Concomitant]
     Indication: PAIN IN EXTREMITY
     Dosage: 60MG PER DAY
     Route: 048
     Dates: start: 20030401
  13. URINORM [Concomitant]
     Dosage: 50MG PER DAY
     Route: 048
     Dates: start: 20050328

REACTIONS (12)
  - ABDOMINAL PAIN [None]
  - COUGH [None]
  - DIARRHOEA [None]
  - DYSPNOEA [None]
  - HYPOALBUMINAEMIA [None]
  - METABOLIC ACIDOSIS [None]
  - NEPHRITIS INTERSTITIAL [None]
  - NEPHROTIC SYNDROME [None]
  - OEDEMA PERIPHERAL [None]
  - PAIN [None]
  - PRODUCTIVE COUGH [None]
  - PROTEIN URINE PRESENT [None]
